FAERS Safety Report 8065596-X (Version None)
Quarter: 2012Q1

REPORT INFORMATION
  Report Type: 
  Country: None (occurrence: None)
  Receive Date: 20120124
  Receipt Date: 20120119
  Transmission Date: 20120608
  Serious: Yes (Hospitalization, Other)
  Sender: FDA-Public Use
  Company Number: US-AMGEN-USASP2011046230

PATIENT
  Age: 48 Year
  Sex: Female
  Weight: 87 kg

DRUGS (2)
  1. PROMACTA [Concomitant]
  2. NPLATE [Suspect]
     Indication: IDIOPATHIC THROMBOCYTOPENIC PURPURA
     Dosage: 2 MUG/KG, UNK
     Route: 058
     Dates: start: 20100322, end: 20110111

REACTIONS (5)
  - MYELODYSPLASTIC SYNDROME [None]
  - THERAPEUTIC RESPONSE DECREASED [None]
  - PANCYTOPENIA [None]
  - BONE MARROW RETICULIN FIBROSIS [None]
  - BIOPSY BONE MARROW ABNORMAL [None]
